FAERS Safety Report 21599792 (Version 1)
Quarter: 2022Q4

REPORT INFORMATION
  Report Type: Spontaneous
  Country: ES (occurrence: ES)
  Receive Date: 20221115
  Receipt Date: 20221115
  Transmission Date: 20230113
  Serious: Yes (Life-Threatening, Hospitalization, Other)
  Sender: FDA-Public Use
  Company Number: None

PATIENT
  Age: 38 Year
  Sex: Female

DRUGS (4)
  1. ELIQUIS [Suspect]
     Active Substance: APIXABAN
     Indication: Thrombosis prophylaxis
     Route: 048
     Dates: start: 20220624, end: 20220703
  2. METAMIZOL [Suspect]
     Active Substance: METAMIZOLE SODIUM
     Indication: Headache
     Route: 048
     Dates: start: 20220623, end: 20220701
  3. OMEPRAZOLE [Suspect]
     Active Substance: OMEPRAZOLE
     Indication: Gastritis prophylaxis
     Route: 048
     Dates: start: 20220620, end: 20220627
  4. METAMIZOL [Concomitant]
     Active Substance: METAMIZOLE SODIUM
     Indication: Headache
     Route: 042
     Dates: start: 20220624, end: 20220625

REACTIONS (1)
  - Agranulocytosis [Recovered/Resolved]

NARRATIVE: CASE EVENT DATE: 20220701
